FAERS Safety Report 7317363-X (Version None)
Quarter: 2011Q1

REPORT INFORMATION
  Report Type: 
  Country: None (occurrence: None)
  Receive Date: 20110226
  Receipt Date: 20101028
  Transmission Date: 20110831
  Serious: No
  Sender: FDA-Public Use
  Company Number: US-ALLERGAN-1013946US

PATIENT
  Age: 32 Year
  Sex: Female

DRUGS (2)
  1. BOTOXA? [Suspect]
     Indication: HYPERHIDROSIS
     Dosage: 100 UNITS, SINGLE
     Route: 023
     Dates: start: 20100520, end: 20100520
  2. BOTOXA? [Suspect]
     Dosage: UNK
     Route: 023

REACTIONS (1)
  - THERAPEUTIC RESPONSE DECREASED [None]
